FAERS Safety Report 4719172-4 (Version None)
Quarter: 2005Q3

REPORT INFORMATION
  Report Type: 
  Country: None (occurrence: None)
  Receive Date: 20050720
  Receipt Date: 20050630
  Transmission Date: 20060218
  Serious: Yes (Hospitalization)
  Sender: FDA-Public Use
  Company Number: DSA_26732_2005

PATIENT
  Age: 29 Year
  Sex: Female

DRUGS (4)
  1. TAVOR [Suspect]
     Dosage: 10 MG ONCE PO
     Route: 048
     Dates: start: 20050625, end: 20050625
  2. ATOSIL [Suspect]
     Dosage: 75 MG BID PO
     Route: 048
  3. ATOSIL [Suspect]
     Dosage: 250 MG ONCE PO
     Route: 048
     Dates: start: 20050625, end: 20050625
  4. FLUOXETINE HCL [Suspect]
     Dosage: 8 MG ONCE PO
     Route: 048
     Dates: start: 20050625, end: 20050625

REACTIONS (4)
  - INTENTIONAL MISUSE [None]
  - MULTIPLE DRUG OVERDOSE [None]
  - SOMNOLENCE [None]
  - TACHYCARDIA [None]
